FAERS Safety Report 21640078 (Version 1)
Quarter: 2022Q4

REPORT INFORMATION
  Report Type: Spontaneous
  Country: CA (occurrence: CA)
  Receive Date: 20221124
  Receipt Date: 20221124
  Transmission Date: 20230112
  Serious: Yes (Hospitalization)
  Sender: FDA-Public Use
  Company Number: None

PATIENT
  Sex: Male

DRUGS (10)
  1. CITALOPRAM HYDROBROMIDE [Interacting]
     Active Substance: CITALOPRAM HYDROBROMIDE
     Indication: Depression
  2. BUPROPION [Interacting]
     Active Substance: BUPROPION
     Indication: Depression
  3. CLONAZEPAM [Interacting]
     Active Substance: CLONAZEPAM
     Indication: Psychotic disorder
  4. CLONAZEPAM [Interacting]
     Active Substance: CLONAZEPAM
     Indication: Depression
  5. QUETIAPINE [Interacting]
     Active Substance: QUETIAPINE
     Indication: Depression
  6. RALTEGRAVIR POTASSIUM [Interacting]
     Active Substance: RALTEGRAVIR POTASSIUM
     Indication: HIV infection
  7. RISPERIDONE [Interacting]
     Active Substance: RISPERIDONE
     Indication: Depression
  8. ATAZANAVIR\RITONAVIR [Concomitant]
     Active Substance: ATAZANAVIR\RITONAVIR
     Indication: HIV infection
  9. EMTRICITABINE [Concomitant]
     Active Substance: EMTRICITABINE
     Indication: HIV infection
  10. TENOFOVIR [Concomitant]
     Active Substance: TENOFOVIR
     Indication: HIV infection

REACTIONS (2)
  - Psychiatric decompensation [Unknown]
  - Drug interaction [Unknown]
